FAERS Safety Report 4323134-9 (Version None)
Quarter: 2004Q1

REPORT INFORMATION
  Report Type: 
  Country: None (occurrence: None)
  Receive Date: 20040324
  Receipt Date: 20040324
  Transmission Date: 20041129
  Serious: Yes (Disabling)
  Sender: FDA-Public Use
  Company Number: None

PATIENT
  Age: 45 Year
  Sex: Female

DRUGS (7)
  1. TRICOR [Suspect]
     Dosage: 200 QD
  2. PRAVACHOL 10 QD [Suspect]
     Dosage: 10 QD
  3. UNIVASC [Concomitant]
  4. PREMARIN [Concomitant]
  5. VERAPAMIL [Concomitant]
  6. ACIPHEX [Concomitant]
  7. WELLBUTRIN SR [Concomitant]

REACTIONS (4)
  - LOW DENSITY LIPOPROTEIN INCREASED [None]
  - OPTIC NEURITIS [None]
  - OPTIC NEUROPATHY [None]
  - VISION BLURRED [None]
